FAERS Safety Report 24354517 (Version 7)
Quarter: 2025Q3

REPORT INFORMATION
  Report Type: Spontaneous
  Country: MY (occurrence: MY)
  Receive Date: 20240923
  Receipt Date: 20250929
  Transmission Date: 20251021
  Serious: Yes (Other)
  Sender: BRISTOL-MYERS SQUIBB COMPANY
  Company Number: MY-IPSEN Group, Research and Development-2024-18230

PATIENT
  Age: 51 Year
  Sex: Male
  Weight: 63 kg

DRUGS (13)
  1. NIVOLUMAB [Suspect]
     Active Substance: NIVOLUMAB
     Indication: Renal cell carcinoma
  2. NIVOLUMAB [Suspect]
     Active Substance: NIVOLUMAB
  3. CABOMETYX [Suspect]
     Active Substance: CABOZANTINIB S-MALATE
     Indication: Renal cell carcinoma
     Dosage: 60 MG, ALTERNATE DAYS
     Dates: start: 20240807, end: 20241014
  4. CABOMETYX [Suspect]
     Active Substance: CABOZANTINIB S-MALATE
     Dosage: ALTERNATE DAYS
     Dates: start: 20241105, end: 20241111
  5. CABOMETYX [Suspect]
     Active Substance: CABOZANTINIB S-MALATE
     Dosage: ONE TABLET EVERY 3 DAYS
     Dates: start: 20241223, end: 20250825
  6. CABOMETYX [Suspect]
     Active Substance: CABOZANTINIB S-MALATE
     Dosage: ONE TABLET EVERY 3 DAYS
     Dates: start: 20250907
  7. TRAMADOL [Concomitant]
     Active Substance: TRAMADOL
     Indication: Product used for unknown indication
     Dosage: 50 MG, QID?50 MG - 1 CAPSULE 4 TIMES (6 HOUR)
  8. Uphamol [Concomitant]
     Indication: Product used for unknown indication
     Dosage: 650 MG, BD? UPHAMOL (650 MG - 1 TABLET 2 TIMES (12 HOUR)
  9. GABAPENTIN [Concomitant]
     Active Substance: GABAPENTIN
     Indication: Product used for unknown indication
     Dosage: 300 MG, BD?GABAPENTIN (TABLET 300 MG - ONE CAPSULE TWO TIMES (HOUR))
  10. CELEBREX [Concomitant]
     Active Substance: CELECOXIB
     Indication: Product used for unknown indication
     Dosage: 200 MG - 1 CAPSULE 1 DAILY
  11. TENOFOVIR [Concomitant]
     Active Substance: TENOFOVIR
     Indication: Product used for unknown indication
     Dosage: 300 MG - 1 TABLET DAILY
  12. BISACODYL [Concomitant]
     Active Substance: BISACODYL
     Indication: Product used for unknown indication
  13. LACTULOSE [Concomitant]
     Active Substance: LACTULOSE
     Indication: Product used for unknown indication

REACTIONS (10)
  - Skin haemorrhage [Unknown]
  - Globulins increased [Unknown]
  - Erythema [Unknown]
  - Blood creatinine increased [Unknown]
  - Weight decreased [Unknown]
  - Asthenia [Unknown]
  - Spinal disorder [Unknown]
  - Alanine aminotransferase increased [Unknown]
  - Aspartate aminotransferase increased [Unknown]
  - Off label use [Unknown]

NARRATIVE: CASE EVENT DATE: 20240826
